FAERS Safety Report 17924422 (Version 4)
Quarter: 2021Q3

REPORT INFORMATION
  Report Type: Spontaneous
  Country: US (occurrence: US)
  Receive Date: 20200622
  Receipt Date: 20210708
  Transmission Date: 20211014
  Serious: Yes (Other)
  Sender: FDA-Public Use
  Company Number: US-GILEAD-2020-0474191

PATIENT
  Age: 57 Year
  Sex: Male
  Weight: 104.31 kg

DRUGS (46)
  1. ATRIPLA [Suspect]
     Active Substance: EFAVIRENZ\EMTRICITABINE\TENOFOVIR DISOPROXIL FUMARATE
     Dosage: UNK
     Route: 048
     Dates: start: 20110712, end: 20111122
  2. INSULIN [Concomitant]
     Active Substance: INSULIN NOS
  3. NICODERM CQ [Concomitant]
     Active Substance: NICOTINE
  4. TRIAMCINOLONE [Concomitant]
     Active Substance: TRIAMCINOLONE
  5. ALBUTEROL [SALBUTAMOL] [Concomitant]
     Active Substance: ALBUTEROL
  6. PRAVASTATIN. [Concomitant]
     Active Substance: PRAVASTATIN
  7. METFORMIN [Concomitant]
     Active Substance: METFORMIN HYDROCHLORIDE
  8. COLCHICINE. [Concomitant]
     Active Substance: COLCHICINE
  9. DOXAZOSIN [Concomitant]
     Active Substance: DOXAZOSIN MESYLATE
  10. ASPIRIN [ACETYLSALICYLIC ACID] [Concomitant]
     Active Substance: ASPIRIN
  11. CLOBETASOL [Concomitant]
     Active Substance: CLOBETASOL
  12. BREO ELLIPTA [Concomitant]
     Active Substance: FLUTICASONE FUROATE\VILANTEROL TRIFENATATE
  13. ATRIPLA [Suspect]
     Active Substance: EFAVIRENZ\EMTRICITABINE\TENOFOVIR DISOPROXIL FUMARATE
     Indication: HIV INFECTION
     Dosage: UNK
     Route: 048
     Dates: start: 2006, end: 20120816
  14. ATRIPLA [Suspect]
     Active Substance: EFAVIRENZ\EMTRICITABINE\TENOFOVIR DISOPROXIL FUMARATE
     Dosage: UNK
     Route: 048
     Dates: start: 2006
  15. SUSTIVA [Concomitant]
     Active Substance: EFAVIRENZ
  16. FLUTICASONE. [Concomitant]
     Active Substance: FLUTICASONE
  17. OXYCODONE [Concomitant]
     Active Substance: OXYCODONE
  18. LISINOPRIL. [Concomitant]
     Active Substance: LISINOPRIL
  19. BUSPIRONE [Concomitant]
     Active Substance: BUSPIRONE HYDROCHLORIDE
  20. ROSUVASTATIN. [Concomitant]
     Active Substance: ROSUVASTATIN
  21. CRESTOR [Concomitant]
     Active Substance: ROSUVASTATIN CALCIUM
  22. LAMIVUDINE. [Concomitant]
     Active Substance: LAMIVUDINE
  23. ACETAMINOPHEN. [Concomitant]
     Active Substance: ACETAMINOPHEN
  24. AMOXICILLIN. [Concomitant]
     Active Substance: AMOXICILLIN
  25. EPIVIR [Concomitant]
     Active Substance: LAMIVUDINE
  26. GLYBURIDE. [Concomitant]
     Active Substance: GLYBURIDE
  27. PREDNISONE. [Concomitant]
     Active Substance: PREDNISONE
  28. ZYLOPRIM [Concomitant]
     Active Substance: ALLOPURINOL
  29. ATRIPLA [Suspect]
     Active Substance: EFAVIRENZ\EMTRICITABINE\TENOFOVIR DISOPROXIL FUMARATE
     Dosage: UNK
     Route: 048
     Dates: start: 20110217, end: 20110712
  30. ATRIPLA [Suspect]
     Active Substance: EFAVIRENZ\EMTRICITABINE\TENOFOVIR DISOPROXIL FUMARATE
     Dosage: UNK
     Route: 048
     Dates: start: 20111214, end: 20120816
  31. EMTRIVA [Concomitant]
     Active Substance: EMTRICITABINE
  32. ZIAGEN [Concomitant]
     Active Substance: ABACAVIR SULFATE
  33. ABACAVIR. [Concomitant]
     Active Substance: ABACAVIR
  34. GLUCOTROL [Concomitant]
     Active Substance: GLIPIZIDE
  35. XALATAN [Concomitant]
     Active Substance: LATANOPROST
  36. CARVEDILOL. [Concomitant]
     Active Substance: CARVEDILOL
  37. VITAMIN B [Concomitant]
     Active Substance: VITAMIN B
  38. LABETALOL [Concomitant]
     Active Substance: LABETALOL\LABETALOL HYDROCHLORIDE
  39. GLIPIZIDE. [Concomitant]
     Active Substance: GLIPIZIDE
  40. VIREAD [Suspect]
     Active Substance: TENOFOVIR DISOPROXIL FUMARATE
     Indication: HIV INFECTION
     Dosage: UNK
     Route: 048
     Dates: start: 20120816, end: 2012
  41. SERTRALINE [Concomitant]
     Active Substance: SERTRALINE HYDROCHLORIDE
  42. ZOLOFT [Concomitant]
     Active Substance: SERTRALINE HYDROCHLORIDE
  43. ERGOCALCIFEROL. [Concomitant]
     Active Substance: ERGOCALCIFEROL
  44. ALLOPURINOL. [Concomitant]
     Active Substance: ALLOPURINOL
  45. BUPROPION. [Concomitant]
     Active Substance: BUPROPION
  46. VENLAFAXINE [Concomitant]
     Active Substance: VENLAFAXINE HYDROCHLORIDE

REACTIONS (18)
  - Emotional distress [Not Recovered/Not Resolved]
  - Anaemia of chronic disease [Not Recovered/Not Resolved]
  - Tooth loss [Not Recovered/Not Resolved]
  - Bone density decreased [Unknown]
  - Acute kidney injury [Unknown]
  - Pain [Not Recovered/Not Resolved]
  - Anxiety [Not Recovered/Not Resolved]
  - Chronic kidney disease [Not Recovered/Not Resolved]
  - Focal segmental glomerulosclerosis [Unknown]
  - Bone metabolism disorder [Not Recovered/Not Resolved]
  - Dyspnoea [Unknown]
  - Hyperparathyroidism secondary [Not Recovered/Not Resolved]
  - Loss of personal independence in daily activities [Unknown]
  - End stage renal disease [Recovered/Resolved]
  - Renal failure [Not Recovered/Not Resolved]
  - Anhedonia [Not Recovered/Not Resolved]
  - Erectile dysfunction [Recovered/Resolved]
  - Proteinuria [Unknown]

NARRATIVE: CASE EVENT DATE: 2006
